FAERS Safety Report 5134965-X (Version None)
Quarter: 2006Q4

REPORT INFORMATION
  Report Type: 
  Country: None (occurrence: None)
  Receive Date: 20061019
  Receipt Date: 20061011
  Transmission Date: 20070319
  Serious: Yes (Hospitalization)
  Sender: FDA-Public Use
  Company Number: 0104-2918

PATIENT
  Age: 67 Year
  Sex: Male
  Weight: 86.1834 kg

DRUGS (5)
  1. ADVICOR [Suspect]
     Indication: HIGH DENSITY LIPOPROTEIN DECREASED
     Dosage: 1 TABLET(S); QHS; PO
     Route: 048
     Dates: start: 20060924, end: 20061010
  2. DOXAZOSIN MESYLATE [Concomitant]
  3. BENAZEPRIL HYDROCHLORIDE [Concomitant]
  4. PLAVIX [Concomitant]
  5. ASPIRIN [Concomitant]

REACTIONS (7)
  - DIARRHOEA [None]
  - DYSARTHRIA [None]
  - FACIAL PALSY [None]
  - FLUSHING [None]
  - LOSS OF CONSCIOUSNESS [None]
  - PARAESTHESIA [None]
  - PHYSICAL EXAMINATION ABNORMAL [None]
